FAERS Safety Report 9346581 (Version 1)
Quarter: 2013Q2

REPORT INFORMATION
  Report Type: Other
  Country: GB (occurrence: GB)
  Receive Date: 20130613
  Receipt Date: 20130613
  Transmission Date: 20140414
  Serious: Yes (Disabling)
  Sender: FDA-Public Use
  Company Number: GB-WATSON-2013-10167

PATIENT
  Sex: Male

DRUGS (7)
  1. LAMOTRIGINE (UNKNOWN) [Suspect]
     Indication: PRODUCT USED FOR UNKNOWN INDICATION
     Dosage: 22 MG, DAILY
     Route: 065
     Dates: end: 20130501
  2. DEPAKOTE [Suspect]
     Indication: PRODUCT USED FOR UNKNOWN INDICATION
     Dosage: 1500 MG, DAILY, WITHDRAWN ON 13 OR 14-MAY-2013
     Route: 065
     Dates: end: 201305
  3. DEPAKOTE [Suspect]
     Dosage: 1000 MG, DAILY
     Route: 065
  4. DEPAKOTE [Suspect]
     Dosage: 500 MG, DAILY
     Route: 065
  5. VENLAFAXINE [Concomitant]
     Indication: PRODUCT USED FOR UNKNOWN INDICATION
     Dosage: 225 MG, UNKNOWN
     Route: 065
  6. MIRTAZAPINE [Concomitant]
     Indication: PRODUCT USED FOR UNKNOWN INDICATION
     Dosage: 20 MG, UNKNOWN
     Route: 065
  7. AMISULPRIDE [Concomitant]
     Indication: PRODUCT USED FOR UNKNOWN INDICATION
     Dosage: 1000 MG, UNKNOWN
     Route: 065

REACTIONS (5)
  - Chest pain [Recovered/Resolved]
  - Sensation of heaviness [Recovered/Resolved]
  - Palpitations [Recovered/Resolved]
  - Restlessness [Recovered/Resolved]
  - Rash [Recovered/Resolved]
